FAERS Safety Report 8187188-4 (Version None)
Quarter: 2012Q1

REPORT INFORMATION
  Report Type: 
  Country: None (occurrence: None)
  Receive Date: 20120306
  Receipt Date: 20120229
  Transmission Date: 20120608
  Serious: Yes (Disabling)
  Sender: FDA-Public Use
  Company Number: FR-PFIZER INC-2012053258

PATIENT
  Age: 73 Year
  Sex: Male

DRUGS (6)
  1. MABTHERA [Suspect]
     Dosage: 660 MG, CYCLIC
     Route: 042
     Dates: start: 20110408, end: 20110926
  2. SOLU-MEDROL [Suspect]
     Dosage: 75 MG, CYCLIC
     Route: 042
     Dates: start: 20110408, end: 20110926
  3. CYCLOPHOSPHAMIDE [Suspect]
     Dosage: 1390 MG, CYCLIC
     Route: 042
     Dates: start: 20110408, end: 20110926
  4. ONCOVIN [Suspect]
     Dosage: 2 MG, CYCLIC
     Route: 042
     Dates: start: 20110408, end: 20110926
  5. METHOTREXATE [Suspect]
     Dosage: 15 MG, CYCLIC
     Route: 037
     Dates: start: 20110408, end: 20110711
  6. DOXORUBICIN HCL [Suspect]
     Dosage: 92 MG, CYCLIC
     Route: 042
     Dates: start: 20110408, end: 20110926

REACTIONS (1)
  - URINARY INCONTINENCE [None]
